FAERS Safety Report 19277332 (Version 1)
Quarter: 2021Q2

REPORT INFORMATION
  Report Type: Spontaneous
  Country: US (occurrence: US)
  Receive Date: 20210519
  Receipt Date: 20210519
  Transmission Date: 20210717
  Serious: Yes (Other)
  Sender: FDA-Public Use
  Company Number: US-AMGEN-USASP2021074630

PATIENT
  Age: 67 Year
  Sex: Male

DRUGS (1)
  1. CORLANOR [Suspect]
     Active Substance: IVABRADINE HYDROCHLORIDE
     Indication: SINUS TACHYCARDIA
     Dosage: 5 MILLIGRAM
     Route: 065
     Dates: start: 2021

REACTIONS (6)
  - Ventricular extrasystoles [Unknown]
  - Dry mouth [Unknown]
  - Constipation [Unknown]
  - Tardive dyskinesia [Recovered/Resolved]
  - Mucosal haemorrhage [Recovered/Resolved]
  - Off label use [Unknown]

NARRATIVE: CASE EVENT DATE: 2021
